FAERS Safety Report 20227907 (Version 1)
Quarter: 2021Q4

REPORT INFORMATION
  Report Type: Spontaneous
  Country: US (occurrence: None)
  Receive Date: 20211224
  Receipt Date: 20211224
  Transmission Date: 20220303
  Serious: Yes (Other)
  Sender: FDA-Public Use
  Company Number: US-ROCHE-2978198

PATIENT
  Sex: Male

DRUGS (6)
  1. OCREVUS [Suspect]
     Active Substance: OCRELIZUMAB
     Indication: Relapsing multiple sclerosis
     Route: 042
     Dates: start: 20210602
  2. OXYBUTYNIN [Concomitant]
     Active Substance: OXYBUTYNIN
  3. GABAPENTIN [Concomitant]
     Active Substance: GABAPENTIN
  4. KEPPRA [Concomitant]
     Active Substance: LEVETIRACETAM
  5. BACLOFEN [Concomitant]
     Active Substance: BACLOFEN
  6. CELEBREX [Concomitant]
     Active Substance: CELECOXIB
     Indication: Relapsing multiple sclerosis
     Dates: start: 2014

REACTIONS (2)
  - Renal tubular necrosis [Unknown]
  - Nephrolithiasis [Unknown]
